FAERS Safety Report 7009794-2 (Version None)
Quarter: 2010Q3

REPORT INFORMATION
  Report Type: 
  Country: None (occurrence: None)
  Receive Date: 20100903
  Receipt Date: 20090710
  Transmission Date: 20110219
  Serious: No
  Sender: FDA-Public Use
  Company Number: 2009-00384

PATIENT
  Age: 76 Year
  Sex: Female
  Weight: 61.6892 kg

DRUGS (5)
  1. ZICAM COLD REMEDY GEL SWABS [Suspect]
     Indication: NASOPHARYNGITIS
     Dates: start: 20030101
  2. HYZAAR [Concomitant]
  3. SIMVASTATIN [Concomitant]
  4. GLIPIZIDE [Concomitant]
  5. VITAMIN D [Concomitant]

REACTIONS (3)
  - AGEUSIA [None]
  - ANOSMIA [None]
  - DYSPHONIA [None]
